FAERS Safety Report 20454106 (Version 1)
Quarter: 2022Q1

REPORT INFORMATION
  Report Type: Report from Study
  Country: BR (occurrence: BR)
  Receive Date: 20220210
  Receipt Date: 20220210
  Transmission Date: 20220423
  Serious: Yes (Disabling, Other)
  Sender: FDA-Public Use
  Company Number: BR-NOVARTISPH-NVSC2022BR019082

PATIENT
  Sex: Female
  Weight: 68 kg

DRUGS (10)
  1. XOLAIR [Suspect]
     Active Substance: OMALIZUMAB
     Indication: Asthma
     Dosage: 150 MG (4 AMPOULES OF 150 MG MONTHLY) STRATED APP. 10 YEARS AGO- IN USE)
     Route: 058
  2. XOLAIR [Suspect]
     Active Substance: OMALIZUMAB
     Dosage: UNK
     Route: 065
     Dates: start: 20211118
  3. AZITHROMYCIN DIHYDRATE [Suspect]
     Active Substance: AZITHROMYCIN DIHYDRATE
     Indication: Asthma
     Dosage: 1 DOSAGE FORM (FROM MON, WED + FRI) STARTED APP. 8 YEARS AGO- IN USE
     Route: 048
  4. AZITHROMYCIN DIHYDRATE [Suspect]
     Active Substance: AZITHROMYCIN DIHYDRATE
     Indication: Asthmatic crisis
     Dosage: 1 DOSAGE FORM, QD (STOPPED AFTER 7 DAYS)
     Route: 048
     Dates: start: 20211227
  5. AZITHROMYCIN DIHYDRATE [Suspect]
     Active Substance: AZITHROMYCIN DIHYDRATE
     Indication: Pneumonia
  6. BUDESONIDE\FORMOTEROL FUMARATE [Suspect]
     Active Substance: BUDESONIDE\FORMOTEROL FUMARATE
     Indication: Asthma
     Dosage: 1 UNK, QD (PUMP 1JET) STARTED 3 MONTHS AGO- IN USE
     Route: 055
  7. ALBUTEROL [Concomitant]
     Active Substance: ALBUTEROL
     Indication: Asthma
     Dosage: 4 UNK, QD  (PUMP, 4 JETS) STARTED APP. 10 YEARS AGO-IN USE
     Route: 055
  8. BUDESONIDE [Concomitant]
     Active Substance: BUDESONIDE
     Indication: Asthma
     Dosage: 1 UNK, BID (1 JET) STARTED APP. 10 YEARS AGO-IN USE
     Route: 055
  9. ALENIA [Concomitant]
     Indication: Asthma
     Dosage: 1 UNK, BID (PUMP 1JET) APP. 10 YEARS AGO- IN USE
     Route: 055
  10. OMEPRAZOLE [Concomitant]
     Active Substance: OMEPRAZOLE
     Indication: Abdominal pain upper
     Dosage: 1 DOSAGE FORM, BID (1 TAB.) APP. 10 YEARS AGO- IN USE
     Route: 048

REACTIONS (17)
  - Dyspnoea exertional [Recovered/Resolved]
  - Pneumonia [Recovered/Resolved]
  - Asthmatic crisis [Recovered/Resolved]
  - Labyrinthitis [Unknown]
  - Insomnia [Unknown]
  - Anxiety [Unknown]
  - Pigmentation disorder [Unknown]
  - Herpes virus infection [Recovered/Resolved]
  - Pruritus [Unknown]
  - Hypersensitivity [Unknown]
  - Blood pressure increased [Not Recovered/Not Resolved]
  - Influenza [Recovered/Resolved]
  - Secretion discharge [Recovered/Resolved]
  - Cough [Recovered/Resolved]
  - Rhinitis [Recovered/Resolved]
  - Headache [Recovered/Resolved]
  - Rhinorrhoea [Unknown]

NARRATIVE: CASE EVENT DATE: 20210101
